FAERS Safety Report 7579012-5 (Version None)
Quarter: 2011Q2

REPORT INFORMATION
  Report Type: 
  Country: None (occurrence: None)
  Receive Date: 20110628
  Receipt Date: 20110616
  Transmission Date: 20111010
  Serious: Yes (Other)
  Sender: FDA-Public Use
  Company Number: PHHY2011HU54246

PATIENT
  Sex: Female

DRUGS (4)
  1. LEFLUNOMIDE [Suspect]
     Dosage: UNK
     Dates: start: 20030101, end: 20060101
  2. METHOTREXATE [Suspect]
     Dosage: UNK
     Dates: start: 19970101, end: 20030101
  3. LEFLUNOMIDE [Suspect]
     Dosage: UNK
     Dates: start: 19970101, end: 20030101
  4. METHOTREXATE [Suspect]
     Dosage: UNK
     Dates: start: 20060101, end: 20070101

REACTIONS (13)
  - LUPUS NEPHRITIS [None]
  - PROTEINURIA [None]
  - HYPOCOMPLEMENTAEMIA [None]
  - ANAEMIA [None]
  - BONE EROSION [None]
  - SYSTEMIC LUPUS ERYTHEMATOSUS [None]
  - LEUKOPENIA [None]
  - CARDIOMYOPATHY [None]
  - CARDIAC FAILURE [None]
  - HAEMATURIA [None]
  - ESCHERICHIA INFECTION [None]
  - NEPHROTIC SYNDROME [None]
  - ARTHRITIS [None]
